FAERS Safety Report 4322117-2 (Version None)
Quarter: 2004Q1

REPORT INFORMATION
  Report Type: 
  Country: None (occurrence: None)
  Receive Date: 20040319
  Receipt Date: 20040303
  Transmission Date: 20041129
  Serious: Yes (Hospitalization)
  Sender: FDA-Public Use
  Company Number: 161526

PATIENT
  Age: 53 Year
  Sex: Female
  Weight: 105.2345 kg

DRUGS (1)
  1. AVONEX [Suspect]
     Indication: MULTIPLE SCLEROSIS
     Dosage: 30 MCG QW IM
     Route: 030
     Dates: start: 19990101, end: 20030101

REACTIONS (6)
  - ASTHMA [None]
  - BACK DISORDER [None]
  - DEPRESSION [None]
  - MEDICATION ERROR [None]
  - MUSCLE SPASMS [None]
  - ROAD TRAFFIC ACCIDENT [None]
